FAERS Safety Report 8060521-X (Version None)
Quarter: 2012Q1

REPORT INFORMATION
  Report Type: 
  Country: None (occurrence: None)
  Receive Date: 20120120
  Receipt Date: 20120112
  Transmission Date: 20120608
  Serious: Yes (Other)
  Sender: FDA-Public Use
  Company Number: CHPA2012US001215

PATIENT
  Age: 61 Year
  Sex: Female

DRUGS (1)
  1. EXCEDRIN EXTRA STRENGTH TABLETS [Suspect]
     Indication: HEADACHE
     Dosage: 1 DF, 2-3 TIMES PRN
     Route: 048

REACTIONS (4)
  - GASTRITIS [None]
  - UNDERDOSE [None]
  - VOMITING [None]
  - DIARRHOEA [None]
